FAERS Safety Report 7466517-0 (Version None)
Quarter: 2011Q2

REPORT INFORMATION
  Report Type: 
  Country: None (occurrence: None)
  Receive Date: 20110509
  Receipt Date: 20110502
  Transmission Date: 20111010
  Serious: Yes (Disabling)
  Sender: FDA-Public Use
  Company Number: PT-ASTRAZENECA-2011SE25135

PATIENT
  Age: 72 Year
  Sex: Female
  Weight: 60 kg

DRUGS (4)
  1. CRESTOR [Suspect]
     Indication: BLOOD CHOLESTEROL
     Route: 048
     Dates: start: 20110301
  2. TROMALYT [Concomitant]
     Indication: PROPHYLAXIS
     Route: 048
     Dates: end: 20110407
  3. LANSOPRAZOL GASTROLIBER [Concomitant]
     Indication: GASTRITIS
     Route: 048
     Dates: end: 20110409
  4. DIOVAN [Concomitant]
     Indication: HYPERTENSION
     Route: 048

REACTIONS (3)
  - RASH [None]
  - ULCER [None]
  - MUSCULAR WEAKNESS [None]
